FAERS Safety Report 11166906 (Version 2)
Quarter: 2015Q3

REPORT INFORMATION
  Report Type: Spontaneous
  Country: US (occurrence: US)
  Receive Date: 20150605
  Receipt Date: 20150703
  Transmission Date: 20151125
  Serious: Yes (Hospitalization, Other)
  Sender: FDA-Public Use
  Company Number: US-UNITED THERAPEUTICS-UNT-2015-006090

PATIENT
  Age: 3 Year
  Sex: Male
  Weight: 13.8 kg

DRUGS (18)
  1. MELATONIN [Concomitant]
     Active Substance: MELATONIN
     Indication: PRODUCT USED FOR UNKNOWN INDICATION
  2. UNITUXIN [Suspect]
     Active Substance: DINUTUXIMAB
     Indication: NEUROBLASTOMA
     Dosage: COURSE 3, 17.5 MG/M2/DAY
     Route: 041
     Dates: start: 20150427, end: 20150430
  3. LIDOCAINE. [Concomitant]
     Active Substance: LIDOCAINE
     Indication: PRODUCT USED FOR UNKNOWN INDICATION
  4. MEGESTROL [Concomitant]
     Active Substance: MEGESTROL
     Indication: PRODUCT USED FOR UNKNOWN INDICATION
  5. SULFAMETHOXAZOLE AND TRIMETHOPRIM [Concomitant]
     Active Substance: SULFAMETHOXAZOLE\TRIMETHOPRIM
     Indication: PRODUCT USED FOR UNKNOWN INDICATION
  6. ISOTRETINOIN [Suspect]
     Active Substance: ISOTRETINOIN
     Indication: NEUROBLASTOMA
     Dosage: COURSE 1, 80 MG/M2/DOSE, BID
     Route: 048
     Dates: start: 20150224, end: 20150324
  7. UNITUXIN [Suspect]
     Active Substance: DINUTUXIMAB
     Dosage: COURSE 1, 17.5 MG/M2/DAY
     Route: 041
     Dates: start: 20150216, end: 20150219
  8. CHOLECALCIFEROL [Concomitant]
     Active Substance: CHOLECALCIFEROL
     Indication: PRODUCT USED FOR UNKNOWN INDICATION
  9. UNITUXIN [Suspect]
     Active Substance: DINUTUXIMAB
     Dosage: COURSE 2, 17.5 MG/M2/DAY
     Route: 041
     Dates: start: 201503, end: 2015
  10. GM-CSF [Suspect]
     Active Substance: GRANULOCYTE-MACROPHAGE COLONY-STIMULATING FACTOR
     Dosage: COURSE 1, 250 ?G/M2/DAY
     Dates: start: 20150213, end: 20150226
  11. ISOTRETINOIN [Suspect]
     Active Substance: ISOTRETINOIN
     Dosage: UNK
     Route: 048
     Dates: end: 20150401
  12. RASH RELIEF ANTIBACTERIAL [Concomitant]
     Active Substance: BACITRACIN\DIMETHICONE\ZINC OXIDE
     Indication: PRODUCT USED FOR UNKNOWN INDICATION
  13. GM-CSF [Suspect]
     Active Substance: GRANULOCYTE-MACROPHAGE COLONY-STIMULATING FACTOR
     Indication: NEUROBLASTOMA
     Dosage: COURSE 3, 250 ?G/M2/DAY
     Dates: start: 20150424, end: 20150503
  14. INTERLEUKIN-2 RECOMBINANT [Suspect]
     Active Substance: ALDESLEUKIN
     Indication: NEUROBLASTOMA
     Dosage: COURSE 2, 4.5 X 10^6 IU/M2/DAY
     Dates: start: 20150331, end: 20150401
  15. INTERLEUKIN-2 RECOMBINANT [Suspect]
     Active Substance: ALDESLEUKIN
     Dosage: COURSE 2, 3X 10^6 IU/M2/DAY
     Dates: start: 20150323, end: 20150327
  16. DOCUSATE [Concomitant]
     Active Substance: DOCUSATE
     Indication: PRODUCT USED FOR UNKNOWN INDICATION
  17. LACTULOSE. [Concomitant]
     Active Substance: LACTULOSE
     Indication: PRODUCT USED FOR UNKNOWN INDICATION
  18. POLYETHYLENE GLYCOL [Concomitant]
     Active Substance: POLYETHYLENE GLYCOLS
     Indication: PRODUCT USED FOR UNKNOWN INDICATION

REACTIONS (2)
  - Hypotension [Recovered/Resolved]
  - Personality change [Unknown]

NARRATIVE: CASE EVENT DATE: 20150428
